FAERS Safety Report 17098498 (Version 1)
Quarter: 2019Q4

REPORT INFORMATION
  Report Type: Spontaneous
  Country: US (occurrence: US)
  Receive Date: 20191129
  Receipt Date: 20191129
  Transmission Date: 20200122
  Serious: Yes (Life-Threatening, Hospitalization, Other)
  Sender: FDA-Public Use
  Company Number: None

PATIENT
  Age: 11 Year
  Sex: Male
  Weight: 44.55 kg

DRUGS (2)
  1. GUANFACINE 3MG/SHIRE PHARMACEUTICAL [Concomitant]
  2. INTUNIV [Suspect]
     Active Substance: GUANFACINE HYDROCHLORIDE
     Indication: ATTENTION DEFICIT/HYPERACTIVITY DISORDER
     Dosage: ?          QUANTITY:3 TABLET(S);?
     Dates: start: 20190301

REACTIONS (6)
  - Nausea [None]
  - Bradycardia [None]
  - Dizziness [None]
  - Vision blurred [None]
  - Hypotension [None]
  - Headache [None]

NARRATIVE: CASE EVENT DATE: 20191101
